FAERS Safety Report 7334822-4 (Version None)
Quarter: 2011Q1

REPORT INFORMATION
  Report Type: 
  Country: None (occurrence: None)
  Receive Date: 20110307
  Receipt Date: 20110301
  Transmission Date: 20110831
  Serious: Yes (Hospitalization, Other)
  Sender: FDA-Public Use
  Company Number: CH-PFIZER INC-2011044011

PATIENT
  Age: 74 Year
  Sex: Female

DRUGS (13)
  1. EFFEXOR [Suspect]
     Indication: DEPRESSION
     Dosage: 75 MG, 2X/DAY
     Route: 048
  2. BLOPRESS PLUS [Concomitant]
     Dosage: 16 / 12.5 MG
     Route: 048
  3. EUTHYROX [Concomitant]
     Dosage: 100 UG 6 DAYS WEEKLY
     Route: 048
  4. NEXIUM [Concomitant]
     Dosage: UNK
  5. INEGY [Concomitant]
     Dosage: 10/40 MG
     Route: 048
  6. ASPIRIN [Interacting]
     Dosage: 100 MG, 1X/DAY
     Route: 048
     Dates: end: 20110209
  7. EFFEXOR [Interacting]
     Dosage: UNK
  8. CLEXANE [Interacting]
     Indication: ANTICOAGULANT THERAPY
     Dosage: 40 MG, 1X/DAY
     Route: 058
     Dates: start: 20110124, end: 20110204
  9. CALCIPARINE [Interacting]
     Indication: ANTICOAGULANT THERAPY
     Dosage: 5000 IU, 2X/DAY
     Route: 058
     Dates: start: 20110106, end: 20110124
  10. MORPHINE [Concomitant]
     Dosage: UNK
     Dates: start: 20110106
  11. DALMADORM ^HOFFMAN^ [Concomitant]
     Dosage: UNK
  12. DAFALGAN [Concomitant]
     Dosage: 1 G, 4X/DAY
  13. CEFUROXIME [Concomitant]
     Dosage: 1500 MG, 4X/DAY
     Route: 042
     Dates: start: 20110115, end: 20110120

REACTIONS (3)
  - POST PROCEDURAL HAEMORRHAGE [None]
  - DRUG INTERACTION [None]
  - HIP ARTHROPLASTY [None]
